FAERS Safety Report 9015340 (Version 1)
Quarter: 2013Q1

REPORT INFORMATION
  Report Type: Spontaneous
  Country: US (occurrence: None)
  Receive Date: 20130109
  Receipt Date: 20130109
  Transmission Date: 20140127
  Serious: Yes (Hospitalization, Disabling)
  Sender: FDA-Public Use
  Company Number: None

PATIENT
  Sex: Female
  Weight: 160 kg

DRUGS (1)
  1. LIPITOR [Suspect]
     Dosage: 10 MG.

REACTIONS (3)
  - Muscle spasms [None]
  - Vomiting [None]
  - Chromaturia [None]
